FAERS Safety Report 15327293 (Version 4)
Quarter: 2019Q1

REPORT INFORMATION
  Report Type: Report from Study
  Country: US (occurrence: US)
  Receive Date: 20180828
  Receipt Date: 20190121
  Transmission Date: 20190417
  Serious: Yes (Death, Life-Threatening, Hospitalization)
  Sender: FDA-Public Use
  Company Number: US-AGIOS-1808US00204

PATIENT
  Sex: Female

DRUGS (2)
  1. POSACONAZOLE [Concomitant]
     Active Substance: POSACONAZOLE
  2. TIBSOVO [Suspect]
     Active Substance: IVOSIDENIB
     Indication: ACUTE MYELOID LEUKAEMIA
     Dosage: 500 MILLIGRAM, QD
     Dates: start: 20180731, end: 20180806

REACTIONS (5)
  - Tumour lysis syndrome [Not Recovered/Not Resolved]
  - Disseminated intravascular coagulation [Not Recovered/Not Resolved]
  - Differentiation syndrome [Fatal]
  - Multiple organ dysfunction syndrome [Not Recovered/Not Resolved]
  - Bacterial sepsis [Not Recovered/Not Resolved]
